FAERS Safety Report 9199683 (Version 1)
Quarter: 2013Q1

REPORT INFORMATION
  Report Type: Spontaneous
  Country: GB (occurrence: GB)
  Receive Date: 20130329
  Receipt Date: 20130329
  Transmission Date: 20140127
  Serious: Yes (Life-Threatening, Hospitalization)
  Sender: FDA-Public Use
  Company Number: GB-PFIZER INC-2008009069JJ

PATIENT
  Age: 51 Year
  Sex: Male
  Weight: 76.7 kg

DRUGS (1)
  1. IBUPROFEN [Suspect]
     Dosage: 400 MG, 5 IN 1 TOTAL
     Route: 048
     Dates: start: 20050616, end: 20050616

REACTIONS (3)
  - Rhabdomyolysis [Recovering/Resolving]
  - Hypercalcaemia [Recovering/Resolving]
  - Renal failure acute [Recovering/Resolving]
